FAERS Safety Report 9260838 (Version 2)
Quarter: 2013Q2

REPORT INFORMATION
  Report Type: Spontaneous
  Country: US (occurrence: US)
  Receive Date: 20130429
  Receipt Date: 20130524
  Transmission Date: 20140414
  Serious: Yes (Death)
  Sender: FDA-Public Use
  Company Number: US-PFIZER INC-2013130921

PATIENT
  Age: 56 Year
  Sex: Male

DRUGS (1)
  1. CAMPTOSAR [Suspect]
     Indication: RECTAL CANCER
     Dosage: 335 MG, UNK
     Dates: start: 20130128

REACTIONS (3)
  - Bacteraemia [Fatal]
  - Staphylococcal sepsis [Fatal]
  - Multi-organ failure [Fatal]
